FAERS Safety Report 24962520 (Version 2)
Quarter: 2025Q1

REPORT INFORMATION
  Report Type: Spontaneous
  Country: US (occurrence: US)
  Receive Date: 20250212
  Receipt Date: 20250324
  Transmission Date: 20250408
  Serious: No
  Sender: SANOFI AVENTIS
  Company Number: US-SA-2025SA041886

PATIENT
  Age: 48 Year
  Sex: Female
  Weight: 101.91 kg

DRUGS (2)
  1. DUPIXENT [Suspect]
     Active Substance: DUPILUMAB
     Indication: Illness
     Dosage: 300 MG, QOW
     Route: 058
  2. DUPIXENT [Suspect]
     Active Substance: DUPILUMAB
     Indication: Dermatitis atopic

REACTIONS (5)
  - Skin laceration [Unknown]
  - Skin haemorrhage [Unknown]
  - Peripheral swelling [Unknown]
  - Depression [Unknown]
  - Dermatitis atopic [Unknown]
